FAERS Safety Report 23966206 (Version 1)
Quarter: 2024Q2

REPORT INFORMATION
  Report Type: Spontaneous
  Country: CN (occurrence: None)
  Receive Date: 20240612
  Receipt Date: 20240612
  Transmission Date: 20240716
  Serious: Yes (Life-Threatening, Other)
  Sender: FDA-Public Use
  Company Number: CN-ROCHE-3580204

PATIENT
  Age: 16 Year
  Sex: Male
  Weight: 42 kg

DRUGS (1)
  1. HERCEPTIN [Suspect]
     Active Substance: TRASTUZUMAB
     Indication: Gastric cancer
     Route: 041
     Dates: start: 20240527, end: 20240527

REACTIONS (8)
  - Hyperhidrosis [Recovered/Resolved]
  - Dizziness [Recovered/Resolved]
  - Dysphoria [Recovered/Resolved]
  - Tachypnoea [Recovered/Resolved]
  - Blood pressure decreased [Recovering/Resolving]
  - Oxygen saturation decreased [Recovering/Resolving]
  - Headache [Recovering/Resolving]
  - Chest discomfort [Recovering/Resolving]

NARRATIVE: CASE EVENT DATE: 20240527
